FAERS Safety Report 8974821 (Version 1)
Quarter: 2012Q4

REPORT INFORMATION
  Report Type: 
  Country: CN (occurrence: CN)
  Receive Date: 20121219
  Receipt Date: 20121219
  Transmission Date: 20130627
  Serious: Yes (Other)
  Sender: FDA-Public Use
  Company Number: PHHY2012CN116685

PATIENT
  Sex: Male
  Weight: 70 kg

DRUGS (1)
  1. MIACALCIC [Suspect]
     Indication: OSTEOPOROSIS
     Dosage: 50 IU, QD
     Route: 030
     Dates: start: 20081231, end: 20081231

REACTIONS (2)
  - Arrhythmia [Recovered/Resolved]
  - Heart rate increased [Recovered/Resolved]
